FAERS Safety Report 5073600-6 (Version None)
Quarter: 2006Q3

REPORT INFORMATION
  Report Type: 
  Country: None (occurrence: None)
  Receive Date: 20060808
  Receipt Date: 20041203
  Transmission Date: 20061208
  Serious: Yes (Other)
  Sender: FDA-Public Use
  Company Number: GB-GLAXOSMITHKLINE-B0359585A

PATIENT
  Sex: Male

DRUGS (4)
  1. SEROXAT [Suspect]
     Indication: DEPRESSION
     Dosage: 20MG PER DAY
     Route: 065
     Dates: start: 20021101
  2. CODEINE + PARACETAMOL [Suspect]
     Route: 065
  3. PAINKILLER (UNKNOWN) [Suspect]
     Route: 065
  4. ALCOHOL [Suspect]
     Route: 065

REACTIONS (4)
  - ILL-DEFINED DISORDER [None]
  - OVERDOSE [None]
  - SELF-INJURIOUS IDEATION [None]
  - SUICIDE ATTEMPT [None]
